FAERS Safety Report 23722500 (Version 2)
Quarter: 2024Q2

REPORT INFORMATION
  Report Type: Spontaneous
  Country: DE (occurrence: DE)
  Receive Date: 20240409
  Receipt Date: 20240603
  Transmission Date: 20240716
  Serious: Yes (Hospitalization, Other)
  Sender: FDA-Public Use
  Company Number: DE-UCBSA-2024016848

PATIENT
  Sex: Female
  Weight: 108 kg

DRUGS (9)
  1. BIMZELX [Interacting]
     Active Substance: BIMEKIZUMAB-BKZX
     Indication: Psoriatic arthropathy
     Dosage: 160 MILLIGRAM, UNK
     Route: 058
     Dates: start: 20240307
  2. MOXONIDINE [Concomitant]
     Active Substance: MOXONIDINE
     Indication: Product used for unknown indication
     Dosage: 0.3 MILLIGRAM, 2X/DAY (BID)
  3. ENALAPRIL [Concomitant]
     Active Substance: ENALAPRIL
     Indication: Product used for unknown indication
     Dosage: 10 MILLIGRAM, ONCE DAILY (QD) (AT MORNING)
  4. EUPHRASIA [Concomitant]
     Indication: Product used for unknown indication
     Dosage: UNK
  5. MAGNESIUM VERLA [MAGNESIUM] [Concomitant]
     Indication: Product used for unknown indication
     Dosage: UNK, TWICE DAILY
  6. VERAPAMIL [Concomitant]
     Active Substance: VERAPAMIL HYDROCHLORIDE
     Indication: Blood pressure increased
     Dosage: 80 MILLIGRAM, ONCE DAILY (QD)
     Dates: start: 20240411
  7. ENALAPRIL MALEATE\HYDROCHLOROTHIAZIDE [Concomitant]
     Active Substance: ENALAPRIL MALEATE\HYDROCHLOROTHIAZIDE
     Indication: Product used for unknown indication
     Dosage: 10/25 MILLIGRAM, ONCE DAILY
  8. NIFEDIPINE [Concomitant]
     Active Substance: NIFEDIPINE
     Indication: Product used for unknown indication
     Dosage: 10 DROPS, EMERGENCY NEEDS
  9. ISOSORBIDE DINITRATE [Concomitant]
     Active Substance: ISOSORBIDE DINITRATE
     Indication: Product used for unknown indication
     Dosage: UNK, EMERGENCY NEED

REACTIONS (15)
  - Hypertensive crisis [Recovered/Resolved]
  - Hypoaesthesia [Unknown]
  - Nausea [Unknown]
  - Vertigo [Unknown]
  - Spinal pain [Recovered/Resolved]
  - Paraesthesia [Unknown]
  - Micturition urgency [Recovered/Resolved]
  - Vision blurred [Recovered/Resolved]
  - Body temperature increased [Unknown]
  - Stress [Unknown]
  - Blood pressure fluctuation [Unknown]
  - Drug intolerance [Unknown]
  - Drug interaction [Unknown]
  - Incorrect dose administered [Unknown]
  - Treatment failure [Unknown]

NARRATIVE: CASE EVENT DATE: 20240101
